FAERS Safety Report 5196375-9 (Version None)
Quarter: 2006Q4

REPORT INFORMATION
  Report Type: 
  Country: None (occurrence: None)
  Receive Date: 20061222
  Receipt Date: 20061213
  Transmission Date: 20070319
  Serious: Yes (Hospitalization)
  Sender: FDA-Public Use
  Company Number: CIP06002951

PATIENT
  Age: 74 Year
  Sex: Female

DRUGS (1)
  1. ACTONEL [Suspect]
     Dosage: UNK, UNK, ORAL
     Route: 048

REACTIONS (1)
  - LIVER DISORDER [None]
